FAERS Safety Report 7477318-1 (Version None)
Quarter: 2011Q2

REPORT INFORMATION
  Report Type: 
  Country: None (occurrence: None)
  Receive Date: 20110513
  Receipt Date: 20110503
  Transmission Date: 20111010
  Serious: Yes (Other)
  Sender: FDA-Public Use
  Company Number: US-BIOGENIDEC-2011BI011983

PATIENT
  Age: 30 Year
  Sex: Female

DRUGS (4)
  1. TYSABRI [Suspect]
     Route: 042
     Dates: start: 20090826
  2. BENADRYL [Concomitant]
     Indication: PREMEDICATION
  3. IMODIUM A-D [Concomitant]
     Indication: PREMEDICATION
  4. TYSABRI [Suspect]
     Indication: MULTIPLE SCLEROSIS
     Route: 042
     Dates: start: 20110222, end: 20110330

REACTIONS (1)
  - ANAPHYLACTIC REACTION [None]
